FAERS Safety Report 12938416 (Version 1)
Quarter: 2016Q4

REPORT INFORMATION
  Report Type: Spontaneous
  Country: CN (occurrence: CN)
  Receive Date: 20161114
  Receipt Date: 20161114
  Transmission Date: 20170207
  Serious: Yes (Other)
  Sender: FDA-Public Use
  Company Number: CN-JNJFOC-20161100848

PATIENT

DRUGS (2)
  1. RISPERIDONE. [Suspect]
     Active Substance: RISPERIDONE
     Indication: SCHIZOPHRENIA
     Route: 065
  2. RISPERIDONE. [Suspect]
     Active Substance: RISPERIDONE
     Indication: SCHIZOPHRENIA
     Dosage: DOSE INCREASED TO 4-6 MG PER DAY WITHIN 14 DAYS.
     Route: 065

REACTIONS (17)
  - Muscle rigidity [Recovering/Resolving]
  - Blood pressure decreased [Recovering/Resolving]
  - Somnolence [Recovering/Resolving]
  - Constipation [Recovering/Resolving]
  - Vomiting [Recovering/Resolving]
  - Agitation [Recovering/Resolving]
  - Body mass index increased [Recovering/Resolving]
  - Oedema peripheral [Recovering/Resolving]
  - Tremor [Recovering/Resolving]
  - Insomnia [Recovering/Resolving]
  - Nausea [Recovering/Resolving]
  - Electrocardiogram abnormal [Recovering/Resolving]
  - Dizziness [Recovering/Resolving]
  - Menstrual disorder [Recovering/Resolving]
  - Galactorrhoea [Recovering/Resolving]
  - Renal impairment [Recovering/Resolving]
  - White blood cell count decreased [Recovering/Resolving]
